FAERS Safety Report 10390473 (Version 2)
Quarter: 2014Q3

REPORT INFORMATION
  Report Type: Spontaneous
  Country: US (occurrence: US)
  Receive Date: 20140818
  Receipt Date: 20140825
  Transmission Date: 20150326
  Serious: Yes (Other)
  Sender: FDA-Public Use
  Company Number: US-PFIZER INC-2014226166

PATIENT
  Age: 72 Year
  Sex: Female
  Weight: 74.83 kg

DRUGS (3)
  1. LOSARTAN POTASSIUM W/HYDROCHLOROTHIAZIDE [Concomitant]
     Active Substance: HYDROCHLOROTHIAZIDE\LOSARTAN POTASSIUM
     Indication: HYPERTENSION
     Dosage: (LOSARTAN POTASSIUM 100MG / HYDROCHLOROTHIAZIDE 25 MG), DAILY
  2. INLYTA [Suspect]
     Active Substance: AXITINIB
     Indication: RENAL CELL CARCINOMA STAGE IV
     Dosage: 5 MG, 2X/DAY
     Route: 048
     Dates: start: 201403
  3. SYNTHROID [Concomitant]
     Active Substance: LEVOTHYROXINE SODIUM
     Indication: HYPOTHYROIDISM
     Dosage: 150 UG, UNK

REACTIONS (4)
  - Breast cancer stage I [Unknown]
  - Hypertension [Recovered/Resolved]
  - Hypothyroidism [Unknown]
  - Second primary malignancy [Unknown]

NARRATIVE: CASE EVENT DATE: 2014
